FAERS Safety Report 4553708-1 (Version None)
Quarter: 2005Q1

REPORT INFORMATION
  Report Type: 
  Country: None (occurrence: None)
  Receive Date: 20050114
  Receipt Date: 20050114
  Transmission Date: 20050727
  Serious: Yes (Life-Threatening, Hospitalization)
  Sender: FDA-Public Use
  Company Number: None

PATIENT
  Age: 60 Year
  Sex: Male

DRUGS (16)
  1. PREDNISONE 20 MG [Suspect]
     Indication: UVEITIS
     Dosage: 20 MG PO QD
     Route: 048
     Dates: start: 20040101, end: 20041114
  2. ASPIRIN [Concomitant]
  3. DIASTIX [Concomitant]
  4. ENALAPRIL MALEATE [Concomitant]
  5. NOVOLIN 70/30 [Concomitant]
  6. KETOROLAC TROMETHAMINE [Concomitant]
  7. METOPROLOL TARTRATE [Concomitant]
  8. MULTI-VITAMIN [Concomitant]
  9. NITROGLYCERIN [Concomitant]
  10. OMEPRAZOLE [Concomitant]
  11. POTASSIUM CHLORIDE [Concomitant]
  12. PREDISOLONE ACET [Concomitant]
  13. PREDNISONE [Concomitant]
  14. SIMVASTATIN [Concomitant]
  15. SPIRONOLACTONE [Concomitant]
  16. WARFARIN NA [Concomitant]

REACTIONS (4)
  - ADRENOCORTICAL INSUFFICIENCY ACUTE [None]
  - BLOOD PRESSURE SYSTOLIC DECREASED [None]
  - DECREASED APPETITE [None]
  - ORAL INTAKE REDUCED [None]
